FAERS Safety Report 13289258 (Version 2)
Quarter: 2017Q2

REPORT INFORMATION
  Report Type: Spontaneous
  Country: US (occurrence: US)
  Receive Date: 20170303
  Receipt Date: 20170515
  Transmission Date: 20170830
  Serious: Yes (Hospitalization)
  Sender: FDA-Public Use
  Company Number: US-ALLERGAN-1707383US

PATIENT
  Age: 41 Year
  Sex: Female

DRUGS (5)
  1. SAPHRIS [Suspect]
     Active Substance: ASENAPINE MALEATE
     Indication: SCHIZOPHRENIA
     Dosage: 10 MG, QPM
     Route: 048
     Dates: end: 2016
  2. COREG [Concomitant]
     Active Substance: CARVEDILOL
     Indication: CARDIAC DISORDER
     Route: 048
  3. METFORMIN [Concomitant]
     Active Substance: METFORMIN HYDROCHLORIDE
     Indication: DIABETES MELLITUS
     Route: 048
  4. GLYBURIDE. [Concomitant]
     Active Substance: GLYBURIDE
     Indication: DIABETES MELLITUS
     Route: 048
  5. LOSARTAN. [Concomitant]
     Active Substance: LOSARTAN
     Indication: CARDIAC DISORDER
     Route: 048

REACTIONS (10)
  - Pulmonary oedema [Recovering/Resolving]
  - Somnolence [Recovering/Resolving]
  - Pneumonia [Recovering/Resolving]
  - Coma [Recovered/Resolved]
  - Dyspnoea [Recovering/Resolving]
  - Foaming at mouth [Recovering/Resolving]
  - Respiratory failure [Recovering/Resolving]
  - Oral discomfort [Recovered/Resolved]
  - Bronchitis [Recovering/Resolving]
  - Cardiac failure [Recovering/Resolving]

NARRATIVE: CASE EVENT DATE: 20150725
